FAERS Safety Report 24624935 (Version 1)
Quarter: 2024Q4

REPORT INFORMATION
  Report Type: Spontaneous
  Country: CA (occurrence: CA)
  Receive Date: 20241115
  Receipt Date: 20241115
  Transmission Date: 20250115
  Serious: Yes (Other)
  Sender: SANDOZ
  Company Number: CA-SANDOZ-SDZ2024CA095447

PATIENT
  Age: 51 Year
  Sex: Male
  Weight: 50.91 kg

DRUGS (2)
  1. HYRIMOZ [Suspect]
     Active Substance: ADALIMUMAB-ADAZ
     Indication: Ankylosing spondylitis
     Dosage: 40 MG, Q2W, SINGLE-USE PREFILLED SYRINGE
     Route: 058
  2. CELEBREX [Concomitant]
     Active Substance: CELECOXIB
     Indication: Product used for unknown indication
     Dosage: UNK
     Route: 065

REACTIONS (5)
  - Brain injury [Recovered/Resolved]
  - Transient ischaemic attack [Recovered/Resolved]
  - Hemiparaesthesia [Recovered/Resolved]
  - Demyelination [Recovered/Resolved]
  - Cerebrovascular accident [Recovered/Resolved]
